FAERS Safety Report 16966218 (Version 2)
Quarter: 2019Q4

REPORT INFORMATION
  Report Type: Spontaneous
  Country: US (occurrence: US)
  Receive Date: 20191028
  Receipt Date: 20191111
  Transmission Date: 20200122
  Serious: Yes (Other)
  Sender: FDA-Public Use
  Company Number: US-MYLANLABS-2019M1100312

PATIENT
  Age: 77 Year
  Sex: Female
  Weight: 53 kg

DRUGS (2)
  1. FENTANYL TRANSDERMAL SYSTEM [Suspect]
     Active Substance: FENTANYL
     Indication: BACK PAIN
     Dosage: UNK UNK, Q3D (EVERY 3 DAYS)
     Route: 062
     Dates: start: 20191018, end: 201910
  2. HYDROCODONE [Concomitant]
     Active Substance: HYDROCODONE

REACTIONS (4)
  - Chest discomfort [Recovered/Resolved]
  - Cardiac failure congestive [Recovered/Resolved]
  - Angina pectoris [Recovered/Resolved]
  - Drug ineffective [Recovered/Resolved]

NARRATIVE: CASE EVENT DATE: 20191018
